FAERS Safety Report 5552468-5 (Version None)
Quarter: 2007Q4

REPORT INFORMATION
  Report Type: 
  Country: None (occurrence: None)
  Receive Date: 20071212
  Receipt Date: 20070617
  Transmission Date: 20080405
  Serious: No
  Sender: FDA-Public Use
  Company Number: US-AMGEN-KDL230058

PATIENT
  Sex: Female

DRUGS (2)
  1. ENBREL [Suspect]
     Indication: RHEUMATOID ARTHRITIS
     Route: 058
     Dates: start: 20060802
  2. ENBREL [Suspect]
     Indication: PSORIASIS

REACTIONS (5)
  - ARTHRALGIA [None]
  - CARDIAC MURMUR [None]
  - DRY MOUTH [None]
  - HYPERTENSION [None]
  - PHARYNGOLARYNGEAL PAIN [None]
